FAERS Safety Report 14153312 (Version 1)
Quarter: 2017Q4

REPORT INFORMATION
  Report Type: Spontaneous
  Country: US (occurrence: US)
  Receive Date: 20171102
  Receipt Date: 20171102
  Transmission Date: 20180321
  Serious: No
  Sender: FDA-Public Use
  Company Number: US-SA-2017SA163802

PATIENT
  Sex: Male

DRUGS (9)
  1. SUPREP BOWEL PREP [Concomitant]
     Active Substance: MAGNESIUM SULFATE\POTASSIUM SULFATE\SODIUM SULFATE
     Dosage: SOL 17.5-3.1
  2. BRILINTA [Concomitant]
     Active Substance: TICAGRELOR
  3. ISOSORBIDE. [Concomitant]
     Active Substance: ISOSORBIDE
  4. KETOROLAC [Concomitant]
     Active Substance: KETOROLAC\KETOROLAC TROMETHAMINE
  5. TAMSULOSIN [Concomitant]
     Active Substance: TAMSULOSIN
  6. ALIROCUMAB PREFILLED PEN [Suspect]
     Active Substance: ALIROCUMAB
  7. NITROGLYCERIN. [Concomitant]
     Active Substance: NITROGLYCERIN
     Dosage: 0.4MG/HR
  8. PRALUENT [Suspect]
     Active Substance: ALIROCUMAB
     Route: 058
  9. HYDROCODONE [Concomitant]
     Active Substance: HYDROCODONE
     Dosage: TAB 7.5-325 M

REACTIONS (2)
  - Headache [Unknown]
  - Dizziness [Unknown]
